FAERS Safety Report 9434010 (Version 1)
Quarter: 2013Q3

REPORT INFORMATION
  Report Type: Spontaneous
  Country: US (occurrence: US)
  Receive Date: 20130801
  Receipt Date: 20130801
  Transmission Date: 20140515
  Serious: Yes (Hospitalization)
  Sender: FDA-Public Use
  Company Number: US-BIOGENIDEC-2013BI068857

PATIENT
  Age: 74 Year
  Sex: Female

DRUGS (1)
  1. AVONEX [Suspect]
     Indication: MULTIPLE SCLEROSIS
     Route: 030
     Dates: start: 19990101

REACTIONS (8)
  - Urinary tract infection [Recovered/Resolved]
  - Facial spasm [Recovered/Resolved]
  - Diverticulitis [Recovered/Resolved]
  - Pyrexia [Recovered/Resolved]
  - Bladder disorder [Recovered/Resolved]
  - Infection [Not Recovered/Not Resolved]
  - Hallucination [Recovered/Resolved]
  - Multiple sclerosis relapse [Recovered/Resolved]
